FAERS Safety Report 23036038 (Version 3)
Quarter: 2024Q1

REPORT INFORMATION
  Report Type: Other
  Country: JP (occurrence: JP)
  Receive Date: 20231006
  Receipt Date: 20240318
  Transmission Date: 20240410
  Serious: Yes (Death, Hospitalization)
  Sender: FDA-Public Use
  Company Number: JP-CHUGAI-2023035416AA

PATIENT
  Age: 71 Year
  Sex: Male
  Weight: 56 kg

DRUGS (19)
  1. GAZYVA [Suspect]
     Active Substance: OBINUTUZUMAB
     Indication: Follicular lymphoma
     Dosage: 1000 MILLIGRAM, QD
     Route: 065
     Dates: start: 20200805, end: 20200805
  2. GAZYVA [Suspect]
     Active Substance: OBINUTUZUMAB
     Dosage: 1000 MILLIGRAM, QD
     Route: 065
     Dates: start: 20200902, end: 20200902
  3. GAZYVA [Suspect]
     Active Substance: OBINUTUZUMAB
     Dosage: 1000 MILLIGRAM, QD
     Route: 065
     Dates: start: 20201007, end: 20201007
  4. GAZYVA [Suspect]
     Active Substance: OBINUTUZUMAB
     Dosage: 1000 MILLIGRAM, QD
     Route: 065
     Dates: start: 20201203, end: 20201203
  5. GAZYVA [Suspect]
     Active Substance: OBINUTUZUMAB
     Dosage: 1000 MILLIGRAM, QD
     Route: 065
     Dates: start: 20210107, end: 20210107
  6. GAZYVA [Suspect]
     Active Substance: OBINUTUZUMAB
     Dosage: 1000 MILLIGRAM, QD
     Route: 065
     Dates: start: 20210204, end: 20210204
  7. GAZYVA [Suspect]
     Active Substance: OBINUTUZUMAB
     Dosage: 1000 MILLIGRAM, QD
     Route: 065
     Dates: start: 20210415, end: 20210415
  8. GAZYVA [Suspect]
     Active Substance: OBINUTUZUMAB
     Dosage: 1000 MILLIGRAM, QD
     Route: 065
     Dates: start: 20210615, end: 20210615
  9. GAZYVA [Suspect]
     Active Substance: OBINUTUZUMAB
     Dosage: 1000 MILLIGRAM, QD
     Route: 065
     Dates: start: 20210810, end: 20210810
  10. GAZYVA [Suspect]
     Active Substance: OBINUTUZUMAB
     Dosage: 1000 MILLIGRAM, QD
     Route: 065
     Dates: start: 20211005, end: 20211005
  11. GAZYVA [Suspect]
     Active Substance: OBINUTUZUMAB
     Dosage: 1000 MILLIGRAM, QD
     Route: 065
     Dates: start: 20211207, end: 20211207
  12. GAZYVA [Suspect]
     Active Substance: OBINUTUZUMAB
     Dosage: 1000 MILLIGRAM, QD
     Route: 065
     Dates: start: 20220201, end: 20220201
  13. GAZYVA [Suspect]
     Active Substance: OBINUTUZUMAB
     Dosage: 1000 MILLIGRAM, QD
     Route: 065
     Dates: start: 20220329, end: 20220329
  14. GAZYVA [Suspect]
     Active Substance: OBINUTUZUMAB
     Dosage: 1000 MILLIGRAM, QD
     Route: 065
     Dates: start: 20220524, end: 20220524
  15. GAZYVA [Suspect]
     Active Substance: OBINUTUZUMAB
     Dosage: 1000 MILLIGRAM, QD
     Route: 065
     Dates: start: 20220802, end: 20220802
  16. GAZYVA [Suspect]
     Active Substance: OBINUTUZUMAB
     Dosage: 1000 MILLIGRAM, QD
     Route: 065
     Dates: start: 20220927, end: 20220927
  17. GAZYVA [Suspect]
     Active Substance: OBINUTUZUMAB
     Dosage: 1000 MILLIGRAM, QD
     Route: 065
     Dates: start: 20221122, end: 20221122
  18. GAZYVA [Suspect]
     Active Substance: OBINUTUZUMAB
     Dosage: 1000 MILLIGRAM, QD
     Route: 065
     Dates: start: 20230117, end: 20230117
  19. BENDAMUSTINE HYDROCHLORIDE [Concomitant]
     Active Substance: BENDAMUSTINE HYDROCHLORIDE
     Indication: Follicular lymphoma
     Dosage: UNK
     Dates: start: 20200805, end: 20210205

REACTIONS (1)
  - COVID-19 [Fatal]

NARRATIVE: CASE EVENT DATE: 20230720
